FAERS Safety Report 6923989-5 (Version None)
Quarter: 2010Q3

REPORT INFORMATION
  Report Type: 
  Country: None (occurrence: None)
  Receive Date: 20100813
  Receipt Date: 20100805
  Transmission Date: 20110219
  Serious: Yes (Other)
  Sender: FDA-Public Use
  Company Number: FI-ELI_LILLY_AND_COMPANY-FI201007000265

PATIENT
  Sex: Female

DRUGS (6)
  1. CYMBALTA [Suspect]
     Indication: DEPRESSION
     Dosage: UNK, UNKNOWN
     Route: 065
  2. CYMBALTA [Suspect]
     Dosage: 60 MG, DAILY (1/D)
     Route: 065
  3. CYMBALTA [Suspect]
     Dosage: UNK, UNKNOWN
     Route: 065
  4. CYMBALTA [Suspect]
     Dosage: 30 MG, QOD
     Route: 065
  5. CALCICHEW-D3 FORTE [Concomitant]
     Dosage: UNK, DAILY (1/D)
  6. GLUCOCORTICOIDS [Concomitant]
     Indication: ASTHMA
     Route: 055

REACTIONS (7)
  - ANORGASMIA [None]
  - BREAST CANCER [None]
  - DRUG WITHDRAWAL SYNDROME [None]
  - INSOMNIA [None]
  - IRRITABILITY [None]
  - RECTAL HAEMORRHAGE [None]
  - TINNITUS [None]
